FAERS Safety Report 15011448 (Version 2)
Quarter: 2018Q3

REPORT INFORMATION
  Report Type: Spontaneous
  Country: US (occurrence: US)
  Receive Date: 20180614
  Receipt Date: 20180709
  Transmission Date: 20181010
  Serious: Yes (Hospitalization, Other)
  Sender: FDA-Public Use
  Company Number: US-OTSUKA-2018_015500

PATIENT
  Sex: Female

DRUGS (4)
  1. ABILIFY [Suspect]
     Active Substance: ARIPIPRAZOLE
     Indication: ANXIETY
     Dosage: 5 MG, QD
     Route: 065
     Dates: start: 20051109
  2. ABILIFY [Suspect]
     Active Substance: ARIPIPRAZOLE
     Indication: INSOMNIA
     Dosage: 30 MG, QD
     Route: 065
     Dates: end: 20100123
  3. ABILIFY [Suspect]
     Active Substance: ARIPIPRAZOLE
     Indication: SCHIZOAFFECTIVE DISORDER BIPOLAR TYPE
  4. ABILIFY [Suspect]
     Active Substance: ARIPIPRAZOLE
     Indication: BIPOLAR DISORDER
     Dosage: 20 MG, QD
     Route: 065

REACTIONS (9)
  - Metabolic surgery [Unknown]
  - Gambling disorder [Recovered/Resolved]
  - Loss of employment [Unknown]
  - Product use in unapproved indication [Unknown]
  - Eating disorder [Recovered/Resolved]
  - Mental disorder [Unknown]
  - Compulsive sexual behaviour [Recovered/Resolved]
  - Economic problem [Unknown]
  - Compulsive shopping [Recovered/Resolved]

NARRATIVE: CASE EVENT DATE: 20051109
